FAERS Safety Report 7937116-9 (Version None)
Quarter: 2011Q4

REPORT INFORMATION
  Report Type: 
  Country: None (occurrence: None)
  Receive Date: 20111123
  Receipt Date: 20111118
  Transmission Date: 20120403
  Serious: Yes (Other)
  Sender: FDA-Public Use
  Company Number: US-US-EMD SERONO, INC.-7097209

PATIENT
  Sex: Male

DRUGS (2)
  1. UNSPECIFIED MEDICATION [Concomitant]
     Indication: DIABETES MELLITUS
     Route: 048
  2. REBIF [Suspect]
     Indication: MULTIPLE SCLEROSIS
     Route: 058
     Dates: start: 20101201

REACTIONS (2)
  - ROAD TRAFFIC ACCIDENT [None]
  - BLOOD GLUCOSE INCREASED [None]
